FAERS Safety Report 18270366 (Version 4)
Quarter: 2021Q2

REPORT INFORMATION
  Report Type: Spontaneous
  Country: DE (occurrence: DE)
  Receive Date: 20200916
  Receipt Date: 20210506
  Transmission Date: 20210717
  Serious: Yes (Other)
  Sender: FDA-Public Use
  Company Number: DE-BIOGEN-2019BI00820666

PATIENT
  Age: 40 Year
  Sex: Female

DRUGS (24)
  1. FAMPYRA [Suspect]
     Active Substance: DALFAMPRIDINE
     Dosage: UNK
     Route: 065
     Dates: start: 20190617
  2. OCREVUS [Suspect]
     Active Substance: OCRELIZUMAB
     Route: 042
     Dates: start: 20181009
  3. QLAIRA [Concomitant]
     Active Substance: DIENOGEST\ESTRADIOL VALERATE
     Indication: PRODUCT USED FOR UNKNOWN INDICATION
     Dosage: UNK
     Route: 065
  4. BUPRENORPHINE. [Suspect]
     Active Substance: BUPRENORPHINE
     Indication: TRIGEMINAL NEURALGIA
     Dosage: UNK
     Route: 065
     Dates: start: 20190805
  5. OCRELIZUMAB. [Suspect]
     Active Substance: OCRELIZUMAB
     Indication: SECONDARY PROGRESSIVE MULTIPLE SCLEROSIS
     Route: 042
     Dates: start: 20180920, end: 20180920
  6. OCRELIZUMAB. [Suspect]
     Active Substance: OCRELIZUMAB
     Route: 042
     Dates: start: 20180910
  7. BACLOFEN. [Concomitant]
     Active Substance: BACLOFEN
     Dosage: 120 MILLIGRAM (HALF IN THE MORNING, HALF IN AFTERNOON ONE IN THE EVENING AND ONE IN THE NIGHT)
     Route: 065
  8. BACLOFEN. [Concomitant]
     Active Substance: BACLOFEN
     Dosage: 15 MG (ONE IN MORNING, ONE IN AFTERNOON, TWO IN EVENING, TWO AT NIGHT)
     Route: 065
  9. CARBAMAZEPIN [Concomitant]
     Active Substance: CARBAMAZEPINE
     Dosage: 300 MILLIGRAM, QD
     Route: 065
  10. OCREVUS [Suspect]
     Active Substance: OCRELIZUMAB
     Route: 042
     Dates: start: 20180920
  11. PREGABALIN. [Concomitant]
     Active Substance: PREGABALIN
     Indication: PRODUCT USED FOR UNKNOWN INDICATION
     Dosage: 300 MILLIGRAM, QMO
     Route: 065
  12. BACLOFEN. [Concomitant]
     Active Substance: BACLOFEN
     Dosage: 60 MG (ONE IN MORNING, ONE IN AFTERNOON, TWO IN EVENING, TWO AT NIGHT)
     Route: 065
  13. CARBAMAZEPIN [Concomitant]
     Active Substance: CARBAMAZEPINE
     Indication: PRODUCT USED FOR UNKNOWN INDICATION
     Dosage: 100 MG, (EVERY 0.33 DAY)
     Route: 065
  14. GABAPENTIN. [Concomitant]
     Active Substance: GABAPENTIN
     Indication: PRODUCT USED FOR UNKNOWN INDICATION
     Dosage: 400 MILLIGRAM, UNKNOWN
     Route: 065
  15. FAMPYRA [Suspect]
     Active Substance: DALFAMPRIDINE
     Indication: PRODUCT USED FOR UNKNOWN INDICATION
     Dosage: UNK
     Route: 065
     Dates: start: 20190617, end: 20190618
  16. BACLOFEN. [Concomitant]
     Active Substance: BACLOFEN
     Indication: PRODUCT USED FOR UNKNOWN INDICATION
     Dosage: 30 MG (HALF IN MORNING, HALF  IN AFTERNOON, ONE IN EVENING, ONE AT NIGHT)
     Route: 065
  17. BACLOFEN. [Concomitant]
     Active Substance: BACLOFEN
     Dosage: 60 MILLIGRAM (ONE IN THE MORNING, ONE IN AFTERNOON TWO IN THE EVENING AND TWO IN THE NIGHT)
     Route: 065
  18. OCRELIZUMAB. [Suspect]
     Active Substance: OCRELIZUMAB
     Dosage: 600 MILLIGRAM, UNK
     Route: 042
     Dates: start: 20200526
  19. OCREVUS [Suspect]
     Active Substance: OCRELIZUMAB
     Indication: SECONDARY PROGRESSIVE MULTIPLE SCLEROSIS
     Dosage: 600 MILLIGRAM, UNKNOWN
     Route: 042
     Dates: start: 20190508
  20. DRONABINOL. [Concomitant]
     Active Substance: DRONABINOL
     Indication: PRODUCT USED FOR UNKNOWN INDICATION
     Dosage: 9?11 GTT (ONE IN ONE TIME), AS NECESSARY
     Route: 065
  21. DEKRISTOL [Concomitant]
     Active Substance: CHOLECALCIFEROL
     Indication: PRODUCT USED FOR UNKNOWN INDICATION
     Dosage: 20000 INTERNATIONAL UNIT, Q2D
     Route: 065
  22. OCRELIZUMAB. [Suspect]
     Active Substance: OCRELIZUMAB
     Dosage: 600 MILLIGRAM, UNKNOWN
     Route: 042
     Dates: start: 20190508
  23. OCRELIZUMAB. [Suspect]
     Active Substance: OCRELIZUMAB
     Route: 042
     Dates: start: 20181009
  24. OCRELIZUMAB. [Suspect]
     Active Substance: OCRELIZUMAB
     Dosage: 600 MILLIGRAM, UNK
     Route: 042
     Dates: start: 20190526

REACTIONS (11)
  - Off label use [Unknown]
  - Cough [Recovered/Resolved]
  - Fatigue [Recovered/Resolved]
  - Vomiting [Recovered/Resolved]
  - Facial pain [Recovered/Resolved]
  - Headache [Not Recovered/Not Resolved]
  - Fall [Unknown]
  - Aphonia [Recovered/Resolved]
  - Nausea [Recovered/Resolved]
  - Rib fracture [Recovered/Resolved]
  - Trigeminal neuralgia [Recovered/Resolved]

NARRATIVE: CASE EVENT DATE: 20181011
